FAERS Safety Report 6221379-4 (Version None)
Quarter: 2009Q2

REPORT INFORMATION
  Report Type: 
  Country: None (occurrence: None)
  Receive Date: 20090605
  Receipt Date: 20090525
  Transmission Date: 20091009
  Serious: Yes (Hospitalization)
  Sender: FDA-Public Use
  Company Number: PL-WYE-H09434509

PATIENT
  Age: 54 Year
  Sex: Male

DRUGS (6)
  1. TEMSIROLIMUS        FOR INFUSION) [Suspect]
     Indication: RENAL CELL CARCINOMA
     Dosage: 25 MG 1X PER 1 WK INTRAVENOUS
     Route: 042
     Dates: start: 20090330, end: 20090511
  2. BEVACIZUMAB, TEST ARTICLE IN TEMSIROLIMUS STUDY (BEVACIZUMAB, INJECTIO [Suspect]
     Indication: RENAL CELL CARCINOMA
     Dosage: 630 MG ^BI-WEEKLY^ INTRAVENOUS
     Route: 042
     Dates: start: 20090330, end: 20090511
  3. BISOPROLOL FUMARATE [Concomitant]
  4. KETOPROFEN [Concomitant]
  5. TRAMADOL HCL [Concomitant]
  6. PAMIDRONATE DISODIUM [Concomitant]

REACTIONS (2)
  - BRONCHOPNEUMONIA [None]
  - DIARRHOEA [None]
